FAERS Safety Report 9400334 (Version 1)
Quarter: 2013Q3

REPORT INFORMATION
  Report Type: Spontaneous
  Country: AU (occurrence: AU)
  Receive Date: 20130715
  Receipt Date: 20130715
  Transmission Date: 20140515
  Serious: Yes (Other)
  Sender: FDA-Public Use
  Company Number: PHHY2013AU073168

PATIENT
  Age: 67 Year
  Sex: Female

DRUGS (3)
  1. ATENOLOL SANDOZ [Suspect]
     Indication: HEADACHE
     Dosage: 50 MG, DAILY
  2. LIPITOR [Concomitant]
  3. NATRILIX [Concomitant]

REACTIONS (4)
  - Wheezing [Unknown]
  - Eye pain [Unknown]
  - Somnolence [Unknown]
  - Fatigue [Unknown]
